FAERS Safety Report 16290993 (Version 2)
Quarter: 2019Q2

REPORT INFORMATION
  Report Type: Spontaneous
  Country: NL (occurrence: NL)
  Receive Date: 20190509
  Receipt Date: 20190605
  Transmission Date: 20190711
  Serious: Yes (Other)
  Sender: FDA-Public Use
  Company Number: NL-MYLANLABS-2019M1043975

PATIENT
  Age: 69 Year
  Sex: Female
  Weight: 86 kg

DRUGS (7)
  1. LOSARTAN. [Suspect]
     Active Substance: LOSARTAN
     Indication: HYPERTENSION
     Dosage: 50 MILLIGRAM, QD(1DD1T)
     Route: 048
     Dates: start: 201901, end: 201901
  2. PARACETAMOL [Concomitant]
     Active Substance: ACETAMINOPHEN
     Dosage: 1 DOSAGE FORM(1DD (Z.N.) TABLET)
  3. NEURASTON [Concomitant]
     Dosage: 1 DOSAGE FORM(2DD 20-50 DRUPPELS (Z.N.))
  4. IBEROGAST [Concomitant]
     Active Substance: HERBALS
     Dosage: 1 DOSAGE FORM(1DD (Z.N.) DRUPPELS)
  5. TASECTAN [Concomitant]
     Active Substance: GELATIN
     Dosage: 1 DOSAGE FORM(1DD (Z.N.) CAPSULE)
  6. OXAZEPAM. [Concomitant]
     Active Substance: OXAZEPAM
     Dosage: 1 DOSAGE FORM, BID(2DD TABLET)
  7. AMLODIPINE [Concomitant]
     Active Substance: AMLODIPINE BESYLATE
     Dosage: 1 DOSAGE FORM, QD(1DD TABLET)

REACTIONS (1)
  - Renal failure [Recovered/Resolved]
